FAERS Safety Report 5905872-7 (Version None)
Quarter: 2008Q4

REPORT INFORMATION
  Report Type: 
  Country: None (occurrence: None)
  Receive Date: 20081001
  Receipt Date: 20081001
  Transmission Date: 20090506
  Serious: Yes (Other)
  Sender: FDA-Public Use
  Company Number: None

PATIENT
  Age: 53 Year
  Sex: Female
  Weight: 83.9154 kg

DRUGS (1)
  1. BENICAR [Suspect]
     Indication: HYPERTENSION
     Dosage: 40 MG ONCER PER DAY
     Dates: start: 20080902, end: 20080927

REACTIONS (4)
  - ACNE [None]
  - PAIN [None]
  - SKIN DISCOLOURATION [None]
  - URTICARIA [None]
